FAERS Safety Report 7126146-5 (Version None)
Quarter: 2010Q4

REPORT INFORMATION
  Report Type: 
  Country: None (occurrence: None)
  Receive Date: 20101129
  Receipt Date: 20101122
  Transmission Date: 20110411
  Serious: Yes (Death, Hospitalization)
  Sender: FDA-Public Use
  Company Number: HU-ROCHE-742795

PATIENT
  Sex: Female
  Weight: 53 kg

DRUGS (2)
  1. BEVACIZUMAB [Suspect]
     Dosage: DOSE: 2 X 400 MG.  LAST DATE PRIOR TO SAE: 22 JULY 2010.
     Route: 042
     Dates: start: 20100722
  2. PACLITAXEL [Suspect]
     Route: 065

REACTIONS (2)
  - ANAEMIA [None]
  - EMBOLISM ARTERIAL [None]
